FAERS Safety Report 12863515 (Version 1)
Quarter: 2016Q4

REPORT INFORMATION
  Report Type: Spontaneous
  Country: US (occurrence: US)
  Receive Date: 20161019
  Receipt Date: 20161019
  Transmission Date: 20170207
  Serious: Yes (Hospitalization)
  Sender: FDA-Public Use
  Company Number: US-VERTEX PHARMACEUTICALS-2016-005909

PATIENT
  Sex: Female

DRUGS (10)
  1. XOPENEX [Concomitant]
     Active Substance: LEVALBUTEROL HYDROCHLORIDE
  2. PREDNISONE. [Concomitant]
     Active Substance: PREDNISONE
  3. ORKAMBI [Suspect]
     Active Substance: IVACAFTOR\LUMACAFTOR
     Indication: CYSTIC FIBROSIS
     Dosage: 400/250 MG, BID
     Route: 048
     Dates: start: 20150918
  4. PULMOZYME [Concomitant]
     Active Substance: DORNASE ALFA
  5. VORICONAZOLE. [Concomitant]
     Active Substance: VORICONAZOLE
  6. HUMALOG [Concomitant]
     Active Substance: INSULIN LISPRO
  7. MEPHYTON [Concomitant]
     Active Substance: PHYTONADIONE
  8. AQUADEKS [Concomitant]
     Active Substance: MINERALS\VITAMINS
  9. AZITHROMYCIN ANHYDROUS. [Concomitant]
     Active Substance: AZITHROMYCIN ANHYDROUS
  10. TOBI [Concomitant]
     Active Substance: TOBRAMYCIN

REACTIONS (1)
  - Hospitalisation [Unknown]
